FAERS Safety Report 10210125 (Version 1)
Quarter: 2014Q2

REPORT INFORMATION
  Report Type: Report from Study
  Country: CA (occurrence: CA)
  Receive Date: 20140602
  Receipt Date: 20140602
  Transmission Date: 20141212
  Serious: Yes (Hospitalization, Other)
  Sender: FDA-Public Use
  Company Number: CA-JNJFOC-20140516740

PATIENT
  Age: 48 Year
  Sex: Female
  Weight: 66 kg

DRUGS (5)
  1. REMICADE [Suspect]
     Indication: RHEUMATOID ARTHRITIS
     Route: 042
     Dates: start: 20080202
  2. METHOTREXATE [Concomitant]
     Dosage: WEEKLY
     Route: 065
  3. LOSEC [Concomitant]
     Dosage: DAILY
     Route: 065
  4. FOLIC ACID [Concomitant]
     Dosage: DAILY
     Route: 065
  5. CELEBREX [Concomitant]
     Dosage: PRN (WHEN NECESSARY)
     Route: 065

REACTIONS (1)
  - Arthrodesis [Unknown]
